FAERS Safety Report 7777584-9 (Version None)
Quarter: 2011Q3

REPORT INFORMATION
  Report Type: 
  Country: None (occurrence: None)
  Receive Date: 20110926
  Receipt Date: 20110913
  Transmission Date: 20111222
  Serious: Yes (Death, Life-Threatening, Hospitalization)
  Sender: FDA-Public Use
  Company Number: US-ELI_LILLY_AND_COMPANY-US201103004112

PATIENT
  Sex: Female
  Weight: 42.812 kg

DRUGS (10)
  1. LORAZEPAM [Concomitant]
     Dosage: 0.5 MG, 3/D
  2. FOLIC ACID [Concomitant]
     Dosage: 4 MG, DAILY (1/D)
     Route: 048
  3. ZOFRAN [Concomitant]
     Dosage: 8 MG, AS NEEDED
  4. FLONASE [Concomitant]
     Dosage: 0.05 %, 2/D
  5. PRILOSEC [Concomitant]
     Dosage: 20 MG, DAILY (1/D)
     Route: 048
  6. OXYCODONE [Concomitant]
     Dosage: 5 MG, EVERY 4 HRS
  7. TESSALON [Concomitant]
     Dosage: 100 MG, 3/D
  8. PEMETREXED [Suspect]
     Indication: NON-SMALL CELL LUNG CANCER
     Dosage: 685 MG, OTHER
     Dates: start: 20060511, end: 20060511
  9. MULTI-VITAMIN [Concomitant]
     Dosage: 1 D/F, DAILY (1/D)
  10. RED BLOOD CELLS, CONCENTRATED [Concomitant]
     Dosage: 3 D/F, UNK

REACTIONS (4)
  - NEUTROPENIA [None]
  - HYPOXIA [None]
  - PNEUMONIA [None]
  - DIARRHOEA [None]
